FAERS Safety Report 17566271 (Version 2)
Quarter: 2020Q2

REPORT INFORMATION
  Report Type: Spontaneous
  Country: FR (occurrence: FR)
  Receive Date: 20200320
  Receipt Date: 20200427
  Transmission Date: 20200713
  Serious: Yes (Hospitalization)
  Sender: FDA-Public Use
  Company Number: FR-MYLANLABS-2020M1028736

PATIENT
  Age: 23 Year
  Sex: Female

DRUGS (3)
  1. SERETIDE [Concomitant]
     Active Substance: FLUTICASONE PROPIONATE\SALMETEROL XINAFOATE
     Dosage: UNK
  2. OXOMEMAZINE [Suspect]
     Active Substance: OXOMEMAZINE
     Indication: COUGH
     Dosage: UNK
     Route: 048
     Dates: start: 20200129, end: 20200131
  3. AZITHROMYCIN ANHYDROUS. [Suspect]
     Active Substance: AZITHROMYCIN ANHYDROUS
     Indication: TONSILLITIS
     Dosage: 500 MILLIGRAM, QD
     Route: 048
     Dates: start: 20200129, end: 20200131

REACTIONS (8)
  - General physical health deterioration [Not Recovered/Not Resolved]
  - Decreased appetite [Not Recovered/Not Resolved]
  - Rhabdomyolysis [Recovered/Resolved]
  - Transaminases increased [Not Recovered/Not Resolved]
  - Acute kidney injury [Recovered/Resolved with Sequelae]
  - Vomiting [Not Recovered/Not Resolved]
  - Anuria [Not Recovered/Not Resolved]
  - Myalgia [Not Recovered/Not Resolved]

NARRATIVE: CASE EVENT DATE: 20200201
